FAERS Safety Report 9870818 (Version 1)
Quarter: 2014Q1

REPORT INFORMATION
  Report Type: Spontaneous
  Country: GB (occurrence: GB)
  Receive Date: 20140205
  Receipt Date: 20140205
  Transmission Date: 20141002
  Serious: Yes (Other)
  Sender: FDA-Public Use
  Company Number: GB-GLAXOSMITHKLINE-B0964121A

PATIENT
  Sex: Male

DRUGS (2)
  1. NIQUITIN [Suspect]
     Dosage: 1IUAX PER DAY
     Route: 061
     Dates: start: 1994, end: 1994
  2. METFORMIN [Concomitant]
     Indication: TYPE 2 DIABETES MELLITUS
     Dosage: 1500MG PER DAY
     Route: 048

REACTIONS (1)
  - Skin mass [Not Recovered/Not Resolved]
